FAERS Safety Report 10551066 (Version 1)
Quarter: 2014Q4

REPORT INFORMATION
  Report Type: Spontaneous
  Country: US (occurrence: None)
  Receive Date: 20141028
  Receipt Date: 20141028
  Transmission Date: 20150529
  Serious: Yes (Other)
  Sender: FDA-Public Use
  Company Number: None

PATIENT
  Sex: Female
  Weight: 76.4 kg

DRUGS (1)
  1. OLANZAPINE. [Suspect]
     Active Substance: OLANZAPINE
     Indication: PSYCHOTIC DISORDER
     Dosage: 10MG X 3 = 30MG ?Q HS?PO
     Route: 048
     Dates: start: 20140812, end: 20141017

REACTIONS (8)
  - Incoherent [None]
  - Thinking abnormal [None]
  - Pregnancy [None]
  - Product quality issue [None]
  - Product substitution issue [None]
  - Mental impairment [None]
  - Abnormal behaviour [None]
  - Drug ineffective [None]
